FAERS Safety Report 5110262-3 (Version None)
Quarter: 2006Q3

REPORT INFORMATION
  Report Type: 
  Country: None (occurrence: None)
  Receive Date: 20060731
  Receipt Date: 20060625
  Transmission Date: 20061208
  Serious: No
  Sender: FDA-Public Use
  Company Number: 2006PV016419

PATIENT
  Age: 68 Year
  Sex: Female
  Weight: 111.1313 kg

DRUGS (3)
  1. BYETTA [Suspect]
     Indication: DIABETES MELLITUS NON-INSULIN-DEPENDENT
     Dosage: 5 MCG;BID;SC
     Route: 058
     Dates: start: 20060601
  2. XALATAN [Concomitant]
  3. TIMOLOL MALEATE [Concomitant]

REACTIONS (6)
  - NAUSEA [None]
  - PLICATED TONGUE [None]
  - RETCHING [None]
  - TONGUE COATED [None]
  - VISUAL DISTURBANCE [None]
  - VOMITING [None]
